FAERS Safety Report 24663817 (Version 1)
Quarter: 2024Q4

REPORT INFORMATION
  Report Type: Spontaneous
  Country: CN (occurrence: CN)
  Receive Date: 20241126
  Receipt Date: 20241126
  Transmission Date: 20250114
  Serious: Yes (Death, Other)
  Sender: ALEXION PHARMACEUTICALS
  Company Number: CN-ASTRAZENECA-202411GLO014335CN

PATIENT
  Age: 65 Year

DRUGS (2)
  1. OSIMERTINIB [Suspect]
     Active Substance: OSIMERTINIB
     Indication: Lung adenocarcinoma stage IV
     Dosage: 80 MILLIGRAM, QD
  2. CISPLATIN [Concomitant]
     Active Substance: CISPLATIN
     Indication: Lung adenocarcinoma stage IV
     Dosage: (120 MG, EVERY 10 DAYS FOR FOUR CYCLES

REACTIONS (7)
  - Malignant neoplasm progression [Fatal]
  - Drug resistance [Unknown]
  - Lung adenocarcinoma [Unknown]
  - Malignant transformation [Unknown]
  - Acquired gene mutation [Unknown]
  - Myocardial ischaemia [Unknown]
  - Cardiotoxicity [Unknown]
